FAERS Safety Report 21648965 (Version 1)
Quarter: 2022Q4

REPORT INFORMATION
  Report Type: Spontaneous
  Country: JP (occurrence: JP)
  Receive Date: 20221128
  Receipt Date: 20221128
  Transmission Date: 20230113
  Serious: Yes (Other)
  Sender: FDA-Public Use
  Company Number: JP-ALKEM LABORATORIES LIMITED-JP-ALKEM-2022-08817

PATIENT
  Sex: Female

DRUGS (10)
  1. ITRACONAZOLE [Interacting]
     Active Substance: ITRACONAZOLE
     Indication: Aspergillus infection
     Dosage: 200 MILLIGRAM, QD
     Route: 048
  2. ITRACONAZOLE [Interacting]
     Active Substance: ITRACONAZOLE
     Indication: Prophylaxis
     Dosage: 200 MILLIGRAM, QD (RESTARTED ON POD 33)
     Route: 048
  3. ITRACONAZOLE [Interacting]
     Active Substance: ITRACONAZOLE
     Dosage: 200 MILLIGRAM, QD (RESTARTED ON POD 75)
     Route: 048
  4. ITRACONAZOLE [Interacting]
     Active Substance: ITRACONAZOLE
     Dosage: 300 MILLIGRAM, TABLET, QD (POD 78)
     Route: 048
  5. ITRACONAZOLE [Interacting]
     Active Substance: ITRACONAZOLE
     Dosage: 300 TO 400 MG/DAY TABLET, ON POD 82
     Route: 048
  6. TACROLIMUS [Interacting]
     Active Substance: TACROLIMUS
     Indication: Immunosuppressant drug therapy
     Dosage: UNK (10-20 NG/ML)
     Route: 065
  7. MYCOPHENOLATE MOFETIL [Concomitant]
     Active Substance: MYCOPHENOLATE MOFETIL
     Indication: Immunosuppressant drug therapy
     Dosage: UNK
     Route: 065
  8. VONOPRAZAN [Concomitant]
     Active Substance: VONOPRAZAN
     Indication: Product used for unknown indication
     Dosage: 10 MILLIGRAM, QD (PER DAY)
     Route: 065
  9. FAMOTIDINE [Concomitant]
     Active Substance: FAMOTIDINE
     Indication: Product used for unknown indication
     Dosage: 40 MILLIGRAM, QD
     Route: 065
  10. VORICONAZOLE [Concomitant]
     Active Substance: VORICONAZOLE
     Indication: Antifungal prophylaxis
     Dosage: 600 MILLIGRAM, QD (PER DAY)
     Route: 065

REACTIONS (7)
  - Cytomegalovirus infection [Unknown]
  - Nausea [Unknown]
  - Vomiting [Unknown]
  - Product taste abnormal [Unknown]
  - Drug interaction [Unknown]
  - Food interaction [Unknown]
  - Drug level increased [Unknown]
